FAERS Safety Report 5472716-X (Version None)
Quarter: 2007Q3

REPORT INFORMATION
  Report Type: 
  Country: None (occurrence: None)
  Receive Date: 20070926
  Receipt Date: 20070918
  Transmission Date: 20080115
  Serious: Yes (Death)
  Sender: FDA-Public Use
  Company Number: 2007AL003443

PATIENT
  Age: 26 Year
  Sex: Female

DRUGS (7)
  1. FLUOXETINE [Suspect]
     Indication: DRUG USE FOR UNKNOWN INDICATION
  2. OLANZAPINE [Concomitant]
  3. ETHINYL ESTRADIOL W [Concomitant]
  4. NORGESTREL [Concomitant]
  5. DIAZEPAM [Concomitant]
  6. NITRAZEPAM [Concomitant]
  7. TRIMEPRAZINE [Concomitant]

REACTIONS (14)
  - ABNORMAL BEHAVIOUR [None]
  - ACUTE RESPIRATORY DISTRESS SYNDROME [None]
  - ARRHYTHMIA [None]
  - COLD SWEAT [None]
  - COUGH [None]
  - EMOTIONAL DISTRESS [None]
  - FALL [None]
  - HEADACHE [None]
  - HYPERHIDROSIS [None]
  - LOWER RESPIRATORY TRACT INFECTION [None]
  - PALLOR [None]
  - PNEUMONIA ASPIRATION [None]
  - SUDDEN DEATH [None]
  - SYNCOPE [None]
